FAERS Safety Report 6856687-7 (Version None)
Quarter: 2010Q3

REPORT INFORMATION
  Report Type: 
  Country: None (occurrence: None)
  Receive Date: 20100719
  Receipt Date: 20100714
  Transmission Date: 20110219
  Serious: Yes (Hospitalization, Disabling, Other)
  Sender: FDA-Public Use
  Company Number: SG-EISAI INC.-E2020-07023-CLI-SG

PATIENT
  Sex: Male
  Weight: 62.1 kg

DRUGS (4)
  1. ARICEPT [Suspect]
     Route: 048
     Dates: start: 20100510, end: 20100516
  2. ARICEPT [Suspect]
     Route: 048
     Dates: start: 20100517, end: 20100602
  3. PF-0447943/PLACEBO [Suspect]
     Dosage: BLINDED THERAPY
     Route: 048
     Dates: start: 20100427, end: 20100503
  4. PF-0447943/PLACEBO [Suspect]
     Dosage: BLINDED THERAPY
     Route: 048
     Dates: start: 20100602, end: 20100602

REACTIONS (1)
  - ACUTE PSYCHOSIS [None]
